FAERS Safety Report 19660247 (Version 1)
Quarter: 2021Q3

REPORT INFORMATION
  Report Type: Spontaneous
  Country: US (occurrence: US)
  Receive Date: 20210805
  Receipt Date: 20210805
  Transmission Date: 20211014
  Serious: Yes (Life-Threatening, Hospitalization)
  Sender: FDA-Public Use
  Company Number: US-MYLANLABS-2021M1047928

PATIENT
  Age: 65 Year
  Sex: Male

DRUGS (3)
  1. HEPARIN [Suspect]
     Active Substance: HEPARIN SODIUM
     Indication: ANTICOAGULANT THERAPY
     Dosage: 500 INTERNATIONAL UNIT, QH (INFUSION)
  2. HEPARIN [Suspect]
     Active Substance: HEPARIN SODIUM
     Dosage: 52000 INTERNATIONAL UNIT
     Route: 065
  3. HEPARIN [Suspect]
     Active Substance: HEPARIN SODIUM
     Indication: ANTICOAGULANT THERAPY
     Dosage: 11750 INTERNATIONAL UNIT
     Route: 065

REACTIONS (6)
  - Femoral artery embolism [Unknown]
  - Thrombosis [Unknown]
  - Acute kidney injury [Unknown]
  - Respiratory failure [Unknown]
  - Renal impairment [Unknown]
  - Thrombocytopenia [Recovered/Resolved]
